FAERS Safety Report 6800619-4 (Version None)
Quarter: 2010Q2

REPORT INFORMATION
  Report Type: 
  Country: None (occurrence: None)
  Receive Date: 20100629
  Receipt Date: 20100617
  Transmission Date: 20101027
  Serious: Yes (Other)
  Sender: FDA-Public Use
  Company Number: FR-JNJFOC-20100503212

PATIENT
  Sex: Female

DRUGS (4)
  1. STELARA [Suspect]
     Indication: PSORIASIS
     Route: 058
  2. MODAMIDE [Suspect]
     Indication: HYPERTENSION
  3. ESIDRIX [Suspect]
     Indication: HYPERTENSION
  4. VASTEN [Suspect]
     Indication: HYPERCHOLESTEROLAEMIA

REACTIONS (3)
  - CYTOLYTIC HEPATITIS [None]
  - GASTROENTERITIS VIRAL [None]
  - HEPATIC STEATOSIS [None]
